FAERS Safety Report 8990194 (Version 1)
Quarter: 2012Q4

REPORT INFORMATION
  Report Type: 
  Country: US (occurrence: US)
  Receive Date: 20121228
  Receipt Date: 20121228
  Transmission Date: 20130627
  Serious: Yes (Other)
  Sender: FDA-Public Use
  Company Number: US-PFIZER INC-2012322040

PATIENT
  Sex: Male

DRUGS (2)
  1. ROBITUSSIN COUGH AND CHEST CONGESTION DM [Suspect]
     Indication: COUGH
     Dosage: UNK
     Dates: start: 20121217, end: 20121218
  2. ROBITUSSIN COUGH AND CHEST CONGESTION DM [Suspect]
     Indication: RESPIRATORY TRACT CONGESTION

REACTIONS (1)
  - Diabetes mellitus [Not Recovered/Not Resolved]
